FAERS Safety Report 6967778-4 (Version None)
Quarter: 2010Q3

REPORT INFORMATION
  Report Type: 
  Country: None (occurrence: None)
  Receive Date: 20100907
  Receipt Date: 20100902
  Transmission Date: 20110219
  Serious: Yes (Life-Threatening)
  Sender: FDA-Public Use
  Company Number: JP-EISAI INC.-E2020-07142-SPO-JP

PATIENT
  Age: 72 Year
  Sex: Female
  Weight: 29 kg

DRUGS (4)
  1. ARICEPT [Suspect]
     Indication: DEMENTIA ALZHEIMER'S TYPE
     Route: 048
     Dates: start: 20100720, end: 20100725
  2. BESACOLIN [Suspect]
     Indication: NEUROGENIC BLADDER
     Route: 048
     Dates: start: 20100715, end: 20100725
  3. LENDORMIN [Concomitant]
  4. EBRANTIL [Concomitant]

REACTIONS (1)
  - CHRONIC OBSTRUCTIVE PULMONARY DISEASE [None]
